FAERS Safety Report 20094847 (Version 1)
Quarter: 2021Q4

REPORT INFORMATION
  Report Type: Spontaneous
  Country: FR (occurrence: FR)
  Receive Date: 20211122
  Receipt Date: 20211122
  Transmission Date: 20220303
  Serious: Yes (Hospitalization, Disabling, Congenital Anomaly, Other)
  Sender: FDA-Public Use
  Company Number: FR-ABBVIE-21K-056-4166048-00

PATIENT
  Sex: Female

DRUGS (3)
  1. VALPROATE SODIUM [Suspect]
     Active Substance: VALPROATE SODIUM
     Indication: Maternal exposure timing unspecified
     Route: 064
     Dates: start: 1987, end: 19880306
  2. ALEPSAL [Concomitant]
     Indication: Maternal exposure timing unspecified
     Dates: start: 1987, end: 19880306
  3. FOLIC ACID [Concomitant]
     Active Substance: FOLIC ACID
     Indication: Maternal exposure timing unspecified
     Dates: start: 198702

REACTIONS (47)
  - Nasopharyngitis [Unknown]
  - Otitis media [Unknown]
  - Rhinotracheitis [Unknown]
  - Bronchiolitis [Unknown]
  - Nasal obstruction [Unknown]
  - Vision blurred [Unknown]
  - Goitre [Unknown]
  - Hypertelorism [Unknown]
  - Hyperthermia [Unknown]
  - Neonatal infection [Unknown]
  - Congenital nose malformation [Unknown]
  - Patent ductus arteriosus [Unknown]
  - Arnold-Chiari malformation [Unknown]
  - Paranasal sinus hypoplasia [Unknown]
  - Syringomyelia [Unknown]
  - Disorientation [Unknown]
  - Dysmorphism [Unknown]
  - Heart disease congenital [Unknown]
  - Cardiac murmur [Unknown]
  - Autism spectrum disorder [Unknown]
  - Disorientation [Unknown]
  - Disability [Unknown]
  - Brain malformation [Unknown]
  - Intervertebral disc disorder [Unknown]
  - Ear, nose and throat disorder [Unknown]
  - Adenoidectomy [Unknown]
  - Paracentesis [Unknown]
  - Premature baby [Unknown]
  - Congenital nose malformation [Unknown]
  - Rhinitis [Unknown]
  - Sneezing [Unknown]
  - Eye pain [Unknown]
  - Photophobia [Unknown]
  - Strabismus [Unknown]
  - Hypermetropia [Unknown]
  - Impaired driving ability [Unknown]
  - Pain [Unknown]
  - Nasal turbinate hypertrophy [Unknown]
  - Hypermetropia [Unknown]
  - Enuresis [Unknown]
  - Paraesthesia [Unknown]
  - Hypotonia [Unknown]
  - Foetal exposure during pregnancy [Unknown]
  - Hypersensitivity [Unknown]
  - Disturbance in attention [Unknown]
  - Headache [Unknown]
  - Pharyngitis [Unknown]

NARRATIVE: CASE EVENT DATE: 19880101
